FAERS Safety Report 7212975-6 (Version None)
Quarter: 2011Q1

REPORT INFORMATION
  Report Type: 
  Country: None (occurrence: None)
  Receive Date: 20110106
  Receipt Date: 20110103
  Transmission Date: 20110831
  Serious: Yes (Hospitalization)
  Sender: FDA-Public Use
  Company Number: A0883827A

PATIENT
  Age: 70 Year
  Sex: Female

DRUGS (10)
  1. TAMOXIFEN CITRATE [Concomitant]
  2. SPIRONOLACTONE [Concomitant]
  3. DIGOXIN [Suspect]
     Route: 048
  4. BLINDED TRIAL MEDICATION [Concomitant]
     Indication: CEREBROVASCULAR ACCIDENT PROPHYLAXIS
     Route: 048
     Dates: start: 20090929
  5. SPIRIVA [Concomitant]
  6. LASIX [Concomitant]
  7. FLECAINIDE [Concomitant]
  8. DILTIAZEM [Concomitant]
  9. NAMENDA [Concomitant]
  10. POTASSIUM [Concomitant]

REACTIONS (4)
  - URINARY TRACT INFECTION [None]
  - NAUSEA [None]
  - ASTHENIA [None]
  - TOXICITY TO VARIOUS AGENTS [None]
